FAERS Safety Report 8374078-7 (Version None)
Quarter: 2012Q2

REPORT INFORMATION
  Report Type: 
  Country: None (occurrence: None)
  Receive Date: 20120521
  Receipt Date: 20120510
  Transmission Date: 20120825
  Serious: Yes (Hospitalization)
  Sender: FDA-Public Use
  Company Number: CH-ASTRAZENECA-2012SE30480

PATIENT
  Age: 79 Year
  Sex: Female

DRUGS (8)
  1. EFFEXOR [Interacting]
     Route: 048
  2. DEPAKENE [Interacting]
     Indication: EPILEPSY
     Route: 048
  3. FOSAMAX [Concomitant]
     Route: 048
  4. NASONEX [Concomitant]
     Route: 045
  5. CALCIUM D3 [Concomitant]
     Route: 048
  6. ACETALGINE [Concomitant]
     Route: 048
  7. SEROQUEL [Suspect]
     Indication: SCHIZOPHRENIA
     Route: 048
  8. CODEINE SULFATE [Interacting]
     Indication: COUGH
     Route: 048
     Dates: start: 20120402, end: 20120406

REACTIONS (5)
  - LOSS OF CONSCIOUSNESS [None]
  - HYPOTENSION [None]
  - DRUG INTERACTION [None]
  - TACHYCARDIA [None]
  - BRADYPNOEA [None]
